FAERS Safety Report 10084082 (Version 1)
Quarter: 2014Q2

REPORT INFORMATION
  Report Type: Spontaneous
  Country: GB (occurrence: None)
  Receive Date: 20140415
  Receipt Date: 20140415
  Transmission Date: 20141212
  Serious: Yes (Other)
  Sender: FDA-Public Use
  Company Number: AUR-APL-2014-04310

PATIENT
  Age: 78 Year
  Sex: Male

DRUGS (4)
  1. TAMSULOSIN (TAMSULOSIN) [Suspect]
     Indication: URINARY RETENTION
     Route: 048
     Dates: start: 20140303
  2. CLEXANE (ENOXAPARIN SODIUM) [Concomitant]
  3. DOCUSATE (DOCUSATE) [Concomitant]
  4. LAXIDO (ELECTROLYTES NOS W/MACROGOL 3350) [Concomitant]

REACTIONS (2)
  - Pruritus [None]
  - Lymphoedema [None]
